FAERS Safety Report 7818952-6 (Version None)
Quarter: 2011Q4

REPORT INFORMATION
  Report Type: 
  Country: None (occurrence: None)
  Receive Date: 20111018
  Receipt Date: 20110915
  Transmission Date: 20120403
  Serious: No
  Sender: FDA-Public Use
  Company Number: US-BAYER-2011-072385

PATIENT
  Age: 72 Year
  Sex: Female

DRUGS (3)
  1. VITAMIN B-12 [Concomitant]
  2. SARGRAMOSTIM [Suspect]
     Dosage: 250 ?G, 4 DAYS ON AND 10 DAYS OFF
     Route: 042
     Dates: start: 20110321, end: 20110610
  3. AVANDIA [Concomitant]

REACTIONS (4)
  - SYNCOPE [None]
  - DYSPNOEA [None]
  - DIZZINESS [None]
  - PRESYNCOPE [None]
